FAERS Safety Report 7582144-9 (Version None)
Quarter: 2011Q2

REPORT INFORMATION
  Report Type: 
  Country: None (occurrence: None)
  Receive Date: 20110630
  Receipt Date: 20110622
  Transmission Date: 20111010
  Serious: No
  Sender: FDA-Public Use
  Company Number: US-BIOGENIDEC-2011BI023298

PATIENT
  Sex: Female

DRUGS (1)
  1. TYSABRI [Suspect]
     Indication: MULTIPLE SCLEROSIS
     Route: 042
     Dates: start: 20070901

REACTIONS (10)
  - COGNITIVE DISORDER [None]
  - POLYARTHRITIS [None]
  - ASTHENIA [None]
  - DYSSTASIA [None]
  - PAIN [None]
  - FATIGUE [None]
  - MENTAL IMPAIRMENT [None]
  - DEPRESSION [None]
  - MULTIPLE SCLEROSIS [None]
  - PAIN IN EXTREMITY [None]
